FAERS Safety Report 26066024 (Version 1)
Quarter: 2025Q4

REPORT INFORMATION
  Report Type: Report from Study
  Country: JP (occurrence: JP)
  Receive Date: 20251119
  Receipt Date: 20251119
  Transmission Date: 20260117
  Serious: Yes (Death, Other)
  Sender: BRISTOL-MYERS SQUIBB COMPANY
  Company Number: JP-ONO-2025JP008483

PATIENT
  Sex: Male

DRUGS (1)
  1. OPDIVO [Suspect]
     Active Substance: NIVOLUMAB
     Indication: Non-small cell lung cancer
     Route: 041

REACTIONS (5)
  - Cytokine storm [Fatal]
  - Immune thrombocytopenia [Unknown]
  - Systemic inflammatory response syndrome [Unknown]
  - Immune-mediated lung disease [Unknown]
  - Immune-mediated enterocolitis [Unknown]
